FAERS Safety Report 10278160 (Version 3)
Quarter: 2015Q4

REPORT INFORMATION
  Report Type: Spontaneous
  Country: US (occurrence: US)
  Receive Date: 20140704
  Receipt Date: 20151001
  Transmission Date: 20160304
  Serious: Yes (Other)
  Sender: FDA-Public Use
  Company Number: PHEH2014US013081

PATIENT
  Sex: Male

DRUGS (7)
  1. ALTACE [Concomitant]
     Active Substance: RAMIPRIL
     Indication: PRODUCT USED FOR UNKNOWN INDICATION
     Route: 065
  2. DILANTIN [Concomitant]
     Active Substance: PHENYTOIN
     Indication: PRODUCT USED FOR UNKNOWN INDICATION
     Route: 065
  3. TEKTURNA [Suspect]
     Active Substance: ALISKIREN HEMIFUMARATE
     Indication: PRODUCT USED FOR UNKNOWN INDICATION
     Dosage: 300 MG, QD
     Route: 065
     Dates: start: 201103, end: 201204
  4. TOPROL XL [Concomitant]
     Active Substance: METOPROLOL SUCCINATE
     Indication: PRODUCT USED FOR UNKNOWN INDICATION
     Route: 065
  5. NORVASC [Concomitant]
     Active Substance: AMLODIPINE BESYLATE
     Indication: PRODUCT USED FOR UNKNOWN INDICATION
     Route: 065
  6. LIPITOR [Concomitant]
     Active Substance: ATORVASTATIN CALCIUM
     Indication: PRODUCT USED FOR UNKNOWN INDICATION
     Route: 065
  7. AMOXICILLIN. [Concomitant]
     Active Substance: AMOXICILLIN
     Indication: PRODUCT USED FOR UNKNOWN INDICATION
     Route: 065

REACTIONS (39)
  - Pulmonary venous thrombosis [Unknown]
  - Abdominal discomfort [Unknown]
  - Phosphorus metabolism disorder [Unknown]
  - Glycosuria [Unknown]
  - Asthenia [Unknown]
  - Renal artery stenosis [Unknown]
  - Myocardial ischaemia [Unknown]
  - Haematuria [Unknown]
  - Vision blurred [Unknown]
  - Tenderness [Unknown]
  - Cerebral artery occlusion [Unknown]
  - Left ventricular end-diastolic pressure increased [Unknown]
  - Joint range of motion decreased [Unknown]
  - Hypoaesthesia [Unknown]
  - Magnesium metabolism disorder [Unknown]
  - Cerebral infarction [Unknown]
  - Renal impairment [Unknown]
  - Chronic kidney disease [Unknown]
  - Left ventricular hypertrophy [Unknown]
  - Insomnia [Unknown]
  - Terminal state [Unknown]
  - Anxiety [Unknown]
  - Hepatic steatosis [Unknown]
  - Hypokalaemia [Unknown]
  - Injury [Unknown]
  - Anhedonia [Unknown]
  - Renal cyst [Unknown]
  - Hyperglycaemia [Unknown]
  - Pollakiuria [Unknown]
  - Blood cholesterol increased [Unknown]
  - Thirst [Unknown]
  - Dizziness [Unknown]
  - Cerebrovascular accident [Unknown]
  - Lacunar infarction [Unknown]
  - Pain [Unknown]
  - Hypoglycaemia [Unknown]
  - Dysarthria [Unknown]
  - Hypotension [Unknown]
  - Blood potassium increased [Unknown]
